FAERS Safety Report 7469457-6 (Version None)
Quarter: 2011Q2

REPORT INFORMATION
  Report Type: 
  Country: None (occurrence: None)
  Receive Date: 20110510
  Receipt Date: 20110503
  Transmission Date: 20111010
  Serious: Yes (Other)
  Sender: FDA-Public Use
  Company Number: US-ABBOTT-11P-163-0723451-00

PATIENT
  Sex: Female
  Weight: 81.72 kg

DRUGS (6)
  1. METHOTREXATE [Concomitant]
     Indication: RHEUMATOID ARTHRITIS
  2. HUMIRA [Suspect]
     Dosage: PENS
     Dates: start: 20080101, end: 20110401
  3. METFORMIN HCL [Concomitant]
     Indication: DIABETES MELLITUS
  4. VICODIN [Concomitant]
     Indication: PAIN
  5. PLAQUENIL [Concomitant]
     Indication: RHEUMATOID ARTHRITIS
  6. HUMIRA [Suspect]
     Indication: RHEUMATOID ARTHRITIS
     Dosage: PFS
     Route: 058
     Dates: start: 20020101

REACTIONS (5)
  - NERVE COMPRESSION [None]
  - BACK PAIN [None]
  - OSTEOARTHRITIS [None]
  - RHEUMATOID ARTHRITIS [None]
  - WHITE BLOOD CELL COUNT INCREASED [None]
